FAERS Safety Report 7759319-9 (Version None)
Quarter: 2011Q3

REPORT INFORMATION
  Report Type: 
  Country: None (occurrence: None)
  Receive Date: 20110919
  Receipt Date: 20110908
  Transmission Date: 20111222
  Serious: Yes (Hospitalization)
  Sender: FDA-Public Use
  Company Number: AU-JNJFOC-20110810737

PATIENT
  Sex: Male

DRUGS (12)
  1. ZOLEDRONIC ACID [Concomitant]
     Indication: BONE DISORDER
     Route: 042
     Dates: start: 20080801
  2. CALCIUM CARBONATE [Concomitant]
     Indication: BONE DISORDER
     Route: 048
     Dates: start: 20030101
  3. CALCIUM AND MAGNESIUM [Concomitant]
     Indication: MINERAL SUPPLEMENTATION
     Route: 048
     Dates: start: 20030101
  4. FISH OIL [Concomitant]
     Indication: CARDIOVASCULAR EVENT PROPHYLAXIS
     Route: 048
     Dates: start: 20030101
  5. MACU-VISION [Concomitant]
     Indication: MACULAR DEGENERATION
     Route: 048
     Dates: start: 20020101
  6. PANAMAX [Concomitant]
     Indication: CANCER PAIN
     Route: 048
     Dates: start: 20060601
  7. DESVENLAFAXINE [Concomitant]
     Indication: DEPRESSION
     Route: 048
     Dates: start: 20100304
  8. PREDNISONE [Suspect]
     Indication: PROSTATE CANCER METASTATIC
     Route: 048
     Dates: start: 20101027
  9. ASPIRIN [Concomitant]
     Indication: HYPERTENSION
     Route: 048
     Dates: start: 20060101
  10. ABIRATERONE ACETATE [Suspect]
     Route: 048
     Dates: start: 20080903, end: 20101026
  11. SOTALOL HCL [Concomitant]
     Indication: ATRIAL FLUTTER
     Route: 048
     Dates: start: 20060101
  12. ABIRATERONE ACETATE [Suspect]
     Indication: PROSTATE CANCER METASTATIC
     Route: 048
     Dates: start: 20101027

REACTIONS (1)
  - DYSPNOEA [None]
